FAERS Safety Report 9028045 (Version 1)
Quarter: 2013Q1

REPORT INFORMATION
  Report Type: Spontaneous
  Country: US (occurrence: None)
  Receive Date: 20130114
  Receipt Date: 20130114
  Transmission Date: 20140127
  Serious: Yes (Hospitalization)
  Sender: FDA-Public Use
  Company Number: None

PATIENT
  Sex: Female
  Weight: 59.6 kg

DRUGS (15)
  1. ONCASPAR [Suspect]
     Dates: end: 20121218
  2. PREDNISONE [Suspect]
     Dates: end: 20130110
  3. VINCRISTINE SULFATE [Suspect]
     Dates: end: 20130104
  4. CYTARABINE [Suspect]
     Dates: end: 20121214
  5. DAUNORUBICIN [Suspect]
     Dates: end: 20130104
  6. METHOTREXATE [Suspect]
     Dates: end: 20121228
  7. AMOXIL [Concomitant]
  8. BENADRYL [Concomitant]
  9. DEXARAZOXANE [Concomitant]
  10. FUROSEMIDE [Concomitant]
  11. MEDROXYPROGESTERONE ACETATE [Concomitant]
  12. MIRALAX [Concomitant]
  13. ONDAMESTRON [Concomitant]
  14. PEPCID [Concomitant]
  15. SEPTRA DS [Concomitant]

REACTIONS (8)
  - Nausea [None]
  - Back pain [None]
  - Blood triglycerides increased [None]
  - Blood cholesterol increased [None]
  - Aspartate aminotransferase increased [None]
  - Alanine aminotransferase increased [None]
  - Blood sodium decreased [None]
  - Lipase increased [None]
